FAERS Safety Report 23466812 (Version 1)
Quarter: 2024Q1

REPORT INFORMATION
  Report Type: Report from Study
  Country: GB (occurrence: GB)
  Receive Date: 20240201
  Receipt Date: 20240201
  Transmission Date: 20240410
  Serious: Yes (Other)
  Sender: FDA-Public Use
  Company Number: GB-PFIZER INC-202400029768

PATIENT
  Age: 13 Year
  Sex: Female

DRUGS (1)
  1. LORLATINIB [Suspect]
     Active Substance: LORLATINIB

REACTIONS (9)
  - Hallucination [Unknown]
  - Delirium [Unknown]
  - Confusional state [Unknown]
  - Personality change [Unknown]
  - Aggression [Unknown]
  - Nervousness [Unknown]
  - Anxiety [Unknown]
  - Poor quality sleep [Unknown]
  - Memory impairment [Unknown]
